FAERS Safety Report 10839619 (Version 1)
Quarter: 2015Q1

REPORT INFORMATION
  Report Type: Spontaneous
  Country: US (occurrence: US)
  Receive Date: 20150220
  Receipt Date: 20150220
  Transmission Date: 20150721
  Serious: No
  Sender: FDA-Public Use
  Company Number: US-ABBVIE-14P-163-1233067-00

PATIENT
  Sex: Female
  Weight: 122.13 kg

DRUGS (1)
  1. HUMIRA [Suspect]
     Active Substance: ADALIMUMAB
     Indication: TEMPORAL ARTERITIS

REACTIONS (2)
  - Injection site pain [Not Recovered/Not Resolved]
  - Medication error [Unknown]
